FAERS Safety Report 4373549-8 (Version None)
Quarter: 2004Q1

REPORT INFORMATION
  Report Type: 
  Country: None (occurrence: None)
  Receive Date: 20040305
  Receipt Date: 20040128
  Transmission Date: 20041129
  Serious: Yes (Other)
  Sender: FDA-Public Use
  Company Number: 2004UW01538

PATIENT
  Age: 72 Year
  Sex: Female
  Weight: 81.6475 kg

DRUGS (7)
  1. CRESTOR [Suspect]
     Indication: BLOOD CHOLESTEROL INCREASED
     Dosage: 10 MG QD PO
     Route: 048
     Dates: start: 20040101
  2. PROZAC [Concomitant]
  3. ALTACE [Concomitant]
  4. ATENOLOL [Concomitant]
  5. CALCIUIM [Concomitant]
  6. E-VITAMIN [Concomitant]
  7. ASPIRIN [Concomitant]

REACTIONS (1)
  - FAECES DISCOLOURED [None]
